FAERS Safety Report 21932987 (Version 2)
Quarter: 2023Q1

REPORT INFORMATION
  Report Type: Report from Study
  Country: FR (occurrence: FR)
  Receive Date: 20230131
  Receipt Date: 20230203
  Transmission Date: 20230417
  Serious: Yes (Other)
  Sender: FDA-Public Use
  Company Number: FR-DSJP-DSE-2023-103378

PATIENT
  Age: 67 Year
  Sex: Female
  Weight: 49 kg

DRUGS (3)
  1. ENHERTU [Suspect]
     Active Substance: FAM-TRASTUZUMAB DERUXTECAN-NXKI
     Indication: HER2 negative breast cancer
     Dosage: 5.4 MG/KG, CYCLIC
     Route: 065
  2. ENHERTU [Suspect]
     Active Substance: FAM-TRASTUZUMAB DERUXTECAN-NXKI
     Indication: Breast cancer metastatic
     Dosage: 3.2 MG/KG, CYCLIC
     Route: 065
  3. ANTIEMETIC MEDICATION [Concomitant]
     Indication: Antiemetic supportive care
     Dosage: UNK
     Route: 065

REACTIONS (7)
  - Hypoalbuminaemia [Unknown]
  - Oedema [Unknown]
  - General physical health deterioration [Unknown]
  - Pyrexia [Unknown]
  - Fatigue [Unknown]
  - Diarrhoea [Unknown]
  - Intentional product use issue [Unknown]
